FAERS Safety Report 21962997 (Version 2)
Quarter: 2023Q1

REPORT INFORMATION
  Report Type: Report from Study
  Country: CA (occurrence: CA)
  Receive Date: 20230207
  Receipt Date: 20230214
  Transmission Date: 20230418
  Serious: Yes (Other)
  Sender: FDA-Public Use
  Company Number: CA-JNJFOC-20230155574

PATIENT
  Age: 27 Year
  Sex: Female

DRUGS (1)
  1. STELARA [Suspect]
     Active Substance: USTEKINUMAB
     Indication: Crohn^s disease
     Dosage: PHYSICIAN WANT ANOTHER REINDUCTION DOSE OF STELARA/ RELOAD AGAIN.
     Route: 041
     Dates: start: 20220308

REACTIONS (3)
  - Chest pain [Recovered/Resolved]
  - Infusion related reaction [Unknown]
  - Dizziness [Unknown]

NARRATIVE: CASE EVENT DATE: 20230123
